FAERS Safety Report 8070400-X (Version None)
Quarter: 2012Q1

REPORT INFORMATION
  Report Type: 
  Country: None (occurrence: None)
  Receive Date: 20120125
  Receipt Date: 20120124
  Transmission Date: 20120608
  Serious: Yes (Death)
  Sender: FDA-Public Use
  Company Number: CA-ROCHE-1028600

PATIENT
  Sex: Male

DRUGS (4)
  1. XELODA [Suspect]
     Indication: PANCREATIC CARCINOMA
     Route: 048
     Dates: start: 20110701
  2. PANTOPRAZOLE [Concomitant]
  3. GEMCITABINE [Concomitant]
  4. ACTONEL [Concomitant]

REACTIONS (2)
  - DISEASE PROGRESSION [None]
  - DEATH [None]
